FAERS Safety Report 6759912-6 (Version None)
Quarter: 2010Q2

REPORT INFORMATION
  Report Type: 
  Country: None (occurrence: None)
  Receive Date: 20100608
  Receipt Date: 20100602
  Transmission Date: 20101027
  Serious: Yes (Other)
  Sender: FDA-Public Use
  Company Number: CA-ELI_LILLY_AND_COMPANY-CA201006001049

PATIENT
  Age: 70 Year
  Sex: Female

DRUGS (3)
  1. HUMALOG [Suspect]
  2. HUMULIN N [Suspect]
     Dosage: 7 U, DAILY (1/D)
  3. HUMULIN R [Suspect]
     Dosage: 7 U, DAILY (1/D)

REACTIONS (1)
  - BLINDNESS [None]
